FAERS Safety Report 24293998 (Version 1)
Quarter: 2024Q3

REPORT INFORMATION
  Report Type: Spontaneous
  Country: US (occurrence: None)
  Receive Date: 20240906
  Receipt Date: 20240906
  Transmission Date: 20241017
  Serious: No
  Sender: DOMPE FARMACEUTICI
  Company Number: US-FARMAPROD-202403-0958

PATIENT
  Sex: Male
  Weight: 81.6 kg

DRUGS (13)
  1. OXERVATE [Suspect]
     Active Substance: CENEGERMIN-BKBJ
     Indication: Neurotrophic keratopathy
     Route: 047
     Dates: start: 20240311
  2. OXERVATE [Suspect]
     Active Substance: CENEGERMIN-BKBJ
  3. COMBIGAN [Concomitant]
     Active Substance: BRIMONIDINE TARTRATE\TIMOLOL MALEATE
     Dosage: 0.2%-0.5%
  4. ACETAMINOPHEN [Concomitant]
     Active Substance: ACETAMINOPHEN
  5. BRIMONIDINE TARTRATE-TIMOLOL [Concomitant]
  6. CARVEDILOL [Concomitant]
     Active Substance: CARVEDILOL
  7. SILDENAFIL CITRATE [Concomitant]
     Active Substance: SILDENAFIL CITRATE
  8. XIIDRA [Concomitant]
     Active Substance: LIFITEGRAST
  9. FLAREX [Concomitant]
     Active Substance: FLUOROMETHOLONE ACETATE
  10. LEVETIRACETAM [Concomitant]
     Active Substance: LEVETIRACETAM
     Dosage: FOR 24 HOURS
  11. FAMOTIDINE [Concomitant]
     Active Substance: FAMOTIDINE
     Dosage: VIAL
  12. A-HYDROCORT [Concomitant]
     Active Substance: HYDROCORTISONE SODIUM SUCCINATE
     Dosage: VIAL
  13. EPINEPHRINE [Concomitant]
     Active Substance: EPINEPHRINE

REACTIONS (8)
  - Eye pain [Unknown]
  - Wrong technique in product usage process [Unknown]
  - Lacrimation increased [Unknown]
  - Asthenopia [Unknown]
  - Eyelid pain [Unknown]
  - Intentional product misuse [Unknown]
  - Drug ineffective [Unknown]
  - Visual impairment [Unknown]
